FAERS Safety Report 23357369 (Version 2)
Quarter: 2024Q1

REPORT INFORMATION
  Report Type: Spontaneous
  Country: GB (occurrence: GB)
  Receive Date: 20240102
  Receipt Date: 20240117
  Transmission Date: 20240410
  Serious: Yes (Other)
  Sender: FDA-Public Use
  Company Number: None

PATIENT
  Age: 26 Year
  Sex: Male
  Weight: 62 kg

DRUGS (2)
  1. MIRTAZAPINE [Suspect]
     Active Substance: MIRTAZAPINE
     Indication: Ill-defined disorder
     Dosage: 15 MILLIGRAM, HS (AT NIGHT)
     Route: 065
     Dates: start: 20231221
  2. MIRTAZAPINE [Concomitant]
     Active Substance: MIRTAZAPINE
     Indication: Ill-defined disorder
     Dosage: UNK, PM, TAKE ONE AT NIGHT
     Route: 065
     Dates: start: 20231221

REACTIONS (3)
  - Sleep paralysis [Unknown]
  - Hangover [Recovering/Resolving]
  - Hallucination, visual [Unknown]

NARRATIVE: CASE EVENT DATE: 20231222
